FAERS Safety Report 8189406-5 (Version None)
Quarter: 2012Q1

REPORT INFORMATION
  Report Type: 
  Country: None (occurrence: None)
  Receive Date: 20120302
  Receipt Date: 20120220
  Transmission Date: 20120608
  Serious: Yes (Hospitalization)
  Sender: FDA-Public Use
  Company Number: 2012SP009488

PATIENT
  Age: 66 Year
  Sex: Male

DRUGS (5)
  1. BACTRIM [Concomitant]
  2. NOXAFIL [Suspect]
     Indication: INFECTION PROPHYLAXIS
     Dosage: 200 MG;TID;PO
     Route: 048
     Dates: start: 20110101, end: 20120220
  3. RAPAMUNE [Concomitant]
  4. MEDROL [Concomitant]
  5. ACYCLOVIR [Concomitant]

REACTIONS (3)
  - FAECAL INCONTINENCE [None]
  - FREQUENT BOWEL MOVEMENTS [None]
  - ABNORMAL FAECES [None]
